FAERS Safety Report 7637062-4 (Version None)
Quarter: 2011Q3

REPORT INFORMATION
  Report Type: 
  Country: None (occurrence: None)
  Receive Date: 20110726
  Receipt Date: 20110714
  Transmission Date: 20111222
  Serious: Yes (Other)
  Sender: FDA-Public Use
  Company Number: US-ASTRAZENECA-2011SE42183

PATIENT
  Age: 788 Month
  Sex: Male
  Weight: 110 kg

DRUGS (5)
  1. PLAVIX [Suspect]
  2. SUNITINIB MALATE [Suspect]
     Indication: NON-SMALL CELL LUNG CANCER
     Route: 048
     Dates: start: 20110408, end: 20110504
  3. LISINOPRIL AND HYDROCHLOROTHIAZIDE [Suspect]
     Route: 048
  4. TOPROL-XL [Suspect]
     Route: 048
  5. PROTONIX [Suspect]

REACTIONS (2)
  - SWOLLEN TONGUE [None]
  - LOCALISED OEDEMA [None]
